FAERS Safety Report 22615153 (Version 1)
Quarter: 2023Q2

REPORT INFORMATION
  Report Type: Spontaneous
  Country: US (occurrence: US)
  Receive Date: 20230619
  Receipt Date: 20230619
  Transmission Date: 20230721
  Serious: No
  Sender: FDA-Public Use
  Company Number: US-BAYER-2023A083724

PATIENT
  Age: 76 Year
  Sex: Female

DRUGS (2)
  1. MIRALAX [Suspect]
     Active Substance: POLYETHYLENE GLYCOL 3350
     Indication: Gastrointestinal disorder
     Dosage: 2 DF, QD
     Route: 048
     Dates: start: 20230514
  2. FIBER THERAPY [Concomitant]
     Indication: Gastrointestinal disorder
     Dosage: 1 DF, BID
     Route: 048
     Dates: start: 20230514

REACTIONS (1)
  - Drug ineffective [Not Recovered/Not Resolved]

NARRATIVE: CASE EVENT DATE: 20230514
